FAERS Safety Report 5968507-3 (Version None)
Quarter: 2008Q4

REPORT INFORMATION
  Report Type: 
  Country: None (occurrence: None)
  Receive Date: 20081121
  Receipt Date: 20081121
  Transmission Date: 20090506
  Serious: Yes (Other)
  Sender: FDA-Public Use
  Company Number: None

PATIENT
  Age: 58 Year
  Sex: Female
  Weight: 74.8435 kg

DRUGS (1)
  1. PRAVASTATIN [Suspect]
     Indication: BLOOD CHOLESTEROL INCREASED
     Dosage: 1 1 DAILY INJ
     Route: 058
     Dates: start: 20080920, end: 20081114

REACTIONS (3)
  - INSOMNIA [None]
  - PAIN [None]
  - PAIN IN EXTREMITY [None]
